FAERS Safety Report 23869127 (Version 1)
Quarter: 2024Q2

REPORT INFORMATION
  Report Type: Spontaneous
  Country: US (occurrence: US)
  Receive Date: 20240517
  Receipt Date: 20240517
  Transmission Date: 20240716
  Serious: Yes (Hospitalization, Other)
  Sender: FDA-Public Use
  Company Number: US-SPECGX-T202401130

PATIENT
  Age: 60 Year
  Sex: Male

DRUGS (1)
  1. FENTANYL TRANSDERMAL SYSTEM [Suspect]
     Active Substance: FENTANYL
     Indication: Pain
     Dosage: 100 ?G/H PATCH EVERY 72 H
     Route: 062

REACTIONS (20)
  - Foreign body in respiratory tract [Unknown]
  - Deep vein thrombosis [Unknown]
  - Pulmonary embolism [Unknown]
  - Neoplasm malignant [Unknown]
  - Feeling of despair [Unknown]
  - Subdural haematoma [Unknown]
  - Thrombocytopenia [Unknown]
  - Renal failure [Unknown]
  - Dyspnoea [Unknown]
  - Overdose [Unknown]
  - Asphyxia [Unknown]
  - Mental status changes [Recovering/Resolving]
  - Tonic convulsion [Recovered/Resolved]
  - Blood pressure decreased [Unknown]
  - Systemic mastocytosis [Unknown]
  - Leukaemia cutis [Unknown]
  - Eosinophilic myocarditis [Unknown]
  - Chronic myelomonocytic leukaemia [Unknown]
  - Endotracheal intubation [Unknown]
  - Wrong technique in product usage process [Unknown]
